FAERS Safety Report 8234123-6 (Version None)
Quarter: 2012Q1

REPORT INFORMATION
  Report Type: 
  Country: None (occurrence: None)
  Receive Date: 20120326
  Receipt Date: 20120326
  Transmission Date: 20120608
  Serious: Yes (Other)
  Sender: FDA-Public Use
  Company Number: None

PATIENT
  Age: 53 Year
  Sex: Female
  Weight: 53.523 kg

DRUGS (1)
  1. VOLTAREN [Suspect]
     Indication: MYALGIA
     Route: 061
     Dates: start: 20120120, end: 20120215

REACTIONS (1)
  - DIARRHOEA [None]
